FAERS Safety Report 7486420-X (Version None)
Quarter: 2011Q2

REPORT INFORMATION
  Report Type: 
  Country: None (occurrence: None)
  Receive Date: 20110516
  Receipt Date: 20110516
  Transmission Date: 20111010
  Serious: Yes (Life-Threatening, Hospitalization)
  Sender: FDA-Public Use
  Company Number: None

PATIENT
  Sex: Male
  Weight: 76 kg

DRUGS (2)
  1. PRADAXA [Suspect]
     Indication: ATRIAL FIBRILLATION
     Dosage: 150 MG BID PO
     Route: 048
     Dates: start: 20110418, end: 20110427
  2. ARIXTRA [Suspect]
     Indication: CEREBROVASCULAR ACCIDENT
     Dosage: 2.5MG DAILY SUBCUT
     Route: 058
     Dates: start: 20110418, end: 20110427

REACTIONS (7)
  - DISORIENTATION [None]
  - CEREBRAL INFARCTION [None]
  - APHASIA [None]
  - ATRIAL FIBRILLATION [None]
  - MELAENA [None]
  - HEMIPARESIS [None]
  - UPPER GASTROINTESTINAL HAEMORRHAGE [None]
